FAERS Safety Report 21538815 (Version 4)
Quarter: 2022Q4

REPORT INFORMATION
  Report Type: Report from Study
  Country: US (occurrence: US)
  Receive Date: 20221102
  Receipt Date: 20221209
  Transmission Date: 20230112
  Serious: Yes (Other)
  Sender: FDA-Public Use
  Company Number: US-BRISTOL-MYERS SQUIBB COMPANY-2022-127929

PATIENT
  Age: 69 Year
  Sex: Female
  Weight: 113.4 kg

DRUGS (7)
  1. REVLIMID [Suspect]
     Active Substance: LENALIDOMIDE
     Indication: Plasma cell myeloma
     Dosage: REVLIMID LABEL INSTRUCTIONS-TAKE 1 CAPSULE DAILY ON DAYS 1 THROUGH 14 OF EACH 21 DAY CYCLE. TAKE WHO
     Route: 065
     Dates: start: 20220926
  2. REVLIMID [Suspect]
     Active Substance: LENALIDOMIDE
     Dosage: TAKE 1 CAPSULE DAILY
     Route: 065
     Dates: start: 20220919
  3. LISINOPRIL [Concomitant]
     Active Substance: LISINOPRIL
     Indication: Blood pressure measurement
     Route: 065
  4. XARELTO [Concomitant]
     Active Substance: RIVAROXABAN
     Indication: Product used for unknown indication
  5. LEVAQUIN [Concomitant]
     Active Substance: LEVOFLOXACIN
     Indication: Product used for unknown indication
  6. VELCADE [Concomitant]
     Active Substance: BORTEZOMIB
     Indication: Product used for unknown indication
  7. DEXAMETHASONE [Concomitant]
     Active Substance: DEXAMETHASONE
     Indication: Product used for unknown indication

REACTIONS (12)
  - Rash pruritic [Unknown]
  - Sternal fracture [Recovering/Resolving]
  - Renal impairment [Recovering/Resolving]
  - Off label use [Unknown]
  - Nausea [Unknown]
  - Lymphoedema [Unknown]
  - Fall [Unknown]
  - Hand fracture [Unknown]
  - Dizziness [Unknown]
  - Syncope [Unknown]
  - Insomnia [Unknown]
  - Somnolence [Unknown]

NARRATIVE: CASE EVENT DATE: 20220926
